FAERS Safety Report 5470270-X (Version None)
Quarter: 2007Q3

REPORT INFORMATION
  Report Type: 
  Country: None (occurrence: None)
  Receive Date: 20070927
  Receipt Date: 20070920
  Transmission Date: 20080115
  Serious: Yes (Congenital Anomaly, Other)
  Sender: FDA-Public Use
  Company Number: JP-ABBOTT-01P-087-0103873-00

PATIENT
  Sex: Male
  Weight: 1.384 kg

DRUGS (3)
  1. GENGRAF [Suspect]
     Indication: DRUG EXPOSURE DURING PREGNANCY
     Route: 064
  2. BLOPRESS TABLETS [Suspect]
     Indication: DRUG EXPOSURE DURING PREGNANCY
     Route: 064
  3. BLOPRESS TABLETS [Suspect]

REACTIONS (34)
  - ASPHYXIA [None]
  - BALANCE DISORDER [None]
  - BLOOD ANTIDIURETIC HORMONE INCREASED [None]
  - CEREBRAL VENTRICLE DILATATION [None]
  - CLONUS [None]
  - CONGENITAL CUTIS LAXA [None]
  - CONGENITAL MUSCULOSKELETAL ANOMALY [None]
  - CRANIOSYNOSTOSIS [None]
  - DEVELOPMENTAL DELAY [None]
  - ELECTROENCEPHALOGRAM ABNORMAL [None]
  - FEBRILE CONVULSION [None]
  - GLOMERULAR VASCULAR DISORDER [None]
  - HEART RATE IRREGULAR [None]
  - HIGH ARCHED PALATE [None]
  - HYDRONEPHROSIS [None]
  - HYPOTENSION [None]
  - JOINT CONTRACTURE [None]
  - JOINT RANGE OF MOTION DECREASED [None]
  - LOW SET EARS [None]
  - MOTOR DYSFUNCTION [None]
  - NEONATAL RESPIRATORY DISTRESS SYNDROME [None]
  - NEPHROGENIC DIABETES INSIPIDUS [None]
  - PARTIAL SEIZURES [None]
  - PERIVENTRICULAR LEUKOMALACIA [None]
  - PNEUMOTHORAX [None]
  - POLYDIPSIA [None]
  - PULMONARY HYPERTENSION [None]
  - PULMONARY HYPOPLASIA [None]
  - RENAL FAILURE [None]
  - RENAL TUBULAR DISORDER [None]
  - RESPIRATORY FAILURE [None]
  - URINE FLOW DECREASED [None]
  - URINE OSMOLARITY DECREASED [None]
  - URINE POTASSIUM INCREASED [None]
